FAERS Safety Report 6499185-5 (Version None)
Quarter: 2009Q4

REPORT INFORMATION
  Report Type: 
  Country: None (occurrence: None)
  Receive Date: 20091127
  Receipt Date: 20081010
  Transmission Date: 20100525
  Serious: Yes (Other)
  Sender: FDA-Public Use
  Company Number: WAES 0807USA01453

PATIENT
  Age: 65 Year
  Sex: Female
  Weight: 76.2043 kg

DRUGS (13)
  1. FOSAMAX [Suspect]
     Indication: OSTEOPOROSIS
     Dosage: 5 MG/DAILY/PO 70 MG/WKY/PO 35 MG/WKY/PO
     Route: 048
     Dates: start: 20000413, end: 20020219
  2. FOSAMAX [Suspect]
     Indication: OSTEOPOROSIS
     Dosage: 5 MG/DAILY/PO 70 MG/WKY/PO 35 MG/WKY/PO
     Route: 048
     Dates: start: 20020320, end: 20060404
  3. ACTONEL [Suspect]
  4. ALLEGRA [Concomitant]
  5. GLUCOPHAGE [Concomitant]
  6. LIPITOR [Concomitant]
  7. PRANDIN [Concomitant]
  8. SYNTHROID [Concomitant]
  9. ULTRAM [Concomitant]
  10. VASOTEC [Concomitant]
  11. VIOXX [Concomitant]
  12. THERAPY UNSPECIFIED [Concomitant]
  13. ASPIRIN [Concomitant]

REACTIONS (16)
  - ABSCESS ORAL [None]
  - ANAEMIA [None]
  - ARTHRALGIA [None]
  - CELLULITIS [None]
  - DIASTOLIC DYSFUNCTION [None]
  - DYSPNOEA EXERTIONAL [None]
  - DYSTHYMIC DISORDER [None]
  - FACIAL PALSY [None]
  - GINGIVAL DISORDER [None]
  - GINGIVITIS [None]
  - IMPAIRED HEALING [None]
  - OSTEOMYELITIS [None]
  - OSTEONECROSIS [None]
  - RENAL FAILURE CHRONIC [None]
  - TOOTH ABSCESS [None]
  - TREATMENT NONCOMPLIANCE [None]
